FAERS Safety Report 10192269 (Version 1)
Quarter: 2014Q2

REPORT INFORMATION
  Report Type: Report from Study
  Country: US (occurrence: US)
  Receive Date: 20140523
  Receipt Date: 20140523
  Transmission Date: 20141212
  Serious: Yes (Hospitalization)
  Sender: FDA-Public Use
  Company Number: PHHO2014US007466

PATIENT
  Age: 73 Year
  Sex: Female
  Weight: 52.5 kg

DRUGS (7)
  1. TASIGNA [Suspect]
     Indication: CHRONIC MYELOID LEUKAEMIA
     Dosage: 300 MG, BID
     Route: 048
     Dates: start: 20120912
  2. ATORVASTATIN [Concomitant]
     Indication: HYPERLIPIDAEMIA
     Dosage: 20 MG, QD
  3. AMLODIPINE [Concomitant]
     Indication: HYPERTENSION
     Dosage: 5 MG, QD
     Dates: start: 20130814
  4. AMIODARONE [Concomitant]
     Indication: ARRHYTHMIA
     Dosage: 200 MG, QD
     Dates: start: 20121107
  5. CITALOPRAM [Concomitant]
     Indication: DEPRESSION
     Dosage: 10 MG, QD
     Dates: start: 20121107
  6. CLOPIDOGREL [Concomitant]
     Indication: PLATELET COUNT INCREASED
     Dosage: 75 MG, QD
  7. MONTELUKAST [Concomitant]
     Indication: HYPERSENSITIVITY
     Dosage: 10 MG, QD
     Dates: start: 20121101

REACTIONS (1)
  - Transient ischaemic attack [Recovering/Resolving]
